FAERS Safety Report 18024709 (Version 1)
Quarter: 2020Q3

REPORT INFORMATION
  Report Type: Spontaneous
  Country: US (occurrence: US)
  Receive Date: 20200714
  Receipt Date: 20200714
  Transmission Date: 20201103
  Serious: Yes (Hospitalization)
  Sender: FDA-Public Use
  Company Number: None

PATIENT
  Age: 63 Year
  Sex: Female

DRUGS (30)
  1. VITAMIN D [Concomitant]
     Active Substance: VITAMIN D NOS
  2. CYANOCOBALAM [Concomitant]
     Active Substance: CYANOCOBALAMIN
  3. DRONABINOL. [Concomitant]
     Active Substance: DRONABINOL
  4. FENOFIBRATE. [Concomitant]
     Active Substance: FENOFIBRATE
  5. GABAPENTIN. [Concomitant]
     Active Substance: GABAPENTIN
  6. HYDROXYZ PAM [Concomitant]
     Active Substance: HYDROXYZINE PAMOATE
  7. LORAZEPAM. [Concomitant]
     Active Substance: LORAZEPAM
  8. CLOTRIMAZOLE. [Concomitant]
     Active Substance: CLOTRIMAZOLE
  9. ELIQUIS [Concomitant]
     Active Substance: APIXABAN
  10. METOCLOPRAM [Suspect]
     Active Substance: METOCLOPRAMIDE
  11. MORPHINE SUL [Concomitant]
     Active Substance: MORPHINE SULFATE
  12. PANTOPRAZOLE [Concomitant]
     Active Substance: PANTOPRAZOLE
  13. PREDNISONE. [Concomitant]
     Active Substance: PREDNISONE
  14. VENTOLIN HFA [Concomitant]
     Active Substance: ALBUTEROL SULFATE
  15. CALCITRATE [Concomitant]
     Active Substance: CALCIUM CITRATE
  16. DOXYCYCL HYC [Concomitant]
  17. MONTELUKAST [Concomitant]
     Active Substance: MONTELUKAST SODIUM
  18. VANCOMYCIN [Concomitant]
     Active Substance: VANCOMYCIN
  19. EVEROLIMUS 25MG (7 TAB/CARD) [Suspect]
     Active Substance: EVEROLIMUS
     Indication: BREAST CANCER FEMALE
     Dosage: ?          OTHER FREQUENCY:Q2WK;  1 PEN?
     Route: 058
     Dates: start: 20200322
  20. AMOX/K CLAV [Concomitant]
     Active Substance: AMOXICILLIN\CLAVULANATE POTASSIUM
  21. FLUDROCORT [Concomitant]
  22. MIDODRINE [Concomitant]
     Active Substance: MIDODRINE
  23. PROCHLORPER [Concomitant]
  24. TRAMADOL HCL [Concomitant]
     Active Substance: TRAMADOL HYDROCHLORIDE
  25. LIDO/PRILOCN CRE [Concomitant]
  26. FEMARA [Concomitant]
     Active Substance: LETROZOLE
  27. LEVOFLOXACIN. [Concomitant]
     Active Substance: LEVOFLOXACIN
  28. LEVOTHYROXIN [Concomitant]
     Active Substance: LEVOTHYROXINE
  29. ONDANSETRON [Concomitant]
     Active Substance: ONDANSETRON
  30. CEPHALEXIN. [Concomitant]
     Active Substance: CEPHALEXIN

REACTIONS (2)
  - Adrenal disorder [None]
  - Clostridium difficile colitis [None]

NARRATIVE: CASE EVENT DATE: 20200701
